FAERS Safety Report 7070898-X (Version None)
Quarter: 2010Q4

REPORT INFORMATION
  Report Type: 
  Country: None (occurrence: None)
  Receive Date: 20101029
  Receipt Date: 20101022
  Transmission Date: 20110411
  Serious: Yes (Life-Threatening)
  Sender: FDA-Public Use
  Company Number: FR-PFIZER INC-2010085230

PATIENT
  Age: 64 Year
  Sex: Male

DRUGS (8)
  1. DALACINE [Suspect]
     Indication: ANTIBIOTIC THERAPY
     Dosage: UNK
     Route: 042
     Dates: start: 20100517, end: 20100521
  2. DALACINE [Suspect]
     Dosage: 600 MG, 3X/DAY
     Route: 048
     Dates: start: 20100522, end: 20100523
  3. AUGMENTIN '125' [Suspect]
     Indication: ANTIBIOTIC THERAPY
     Dosage: UNK
     Route: 042
     Dates: start: 20100517, end: 20100521
  4. AUGMENTIN '125' [Suspect]
     Dosage: 1 G, 3X/DAY
     Route: 048
     Dates: start: 20100521, end: 20100522
  5. PYOSTACINE [Suspect]
     Indication: ANTIBIOTIC THERAPY
     Dosage: 2 UNK, UNK
     Route: 048
     Dates: start: 20100511, end: 20100517
  6. COAPROVEL [Concomitant]
  7. FLUDEX [Concomitant]
  8. FENOFIBRATE [Concomitant]

REACTIONS (4)
  - DERMATITIS EXFOLIATIVE [None]
  - LEFT VENTRICULAR FAILURE [None]
  - RENAL FAILURE ACUTE [None]
  - RESPIRATORY DISTRESS [None]
